FAERS Safety Report 22947203 (Version 2)
Quarter: 2023Q4

REPORT INFORMATION
  Report Type: Spontaneous
  Country: GB (occurrence: GB)
  Receive Date: 20230915
  Receipt Date: 20231005
  Transmission Date: 20240110
  Serious: Yes (Disabling, Other)
  Sender: FDA-Public Use
  Company Number: None

PATIENT
  Age: 53 Year
  Sex: Male
  Weight: 75 kg

DRUGS (1)
  1. ELOCON [Suspect]
     Active Substance: MOMETASONE FUROATE
     Indication: Eczema
     Dosage: UNK
     Dates: end: 20230401

REACTIONS (10)
  - Medication error [Unknown]
  - Rash erythematous [Not Recovered/Not Resolved]
  - Lymphadenopathy [Not Recovered/Not Resolved]
  - Insomnia [Not Recovered/Not Resolved]
  - Skin exfoliation [Not Recovered/Not Resolved]
  - Oedema [Not Recovered/Not Resolved]
  - Inflammation [Unknown]
  - Alopecia [Unknown]
  - Topical steroid withdrawal reaction [Unknown]
  - Wrong dose [Unknown]

NARRATIVE: CASE EVENT DATE: 20230401
